FAERS Safety Report 8291300-6 (Version None)
Quarter: 2012Q2

REPORT INFORMATION
  Report Type: 
  Country: None (occurrence: None)
  Receive Date: 20120417
  Receipt Date: 20120402
  Transmission Date: 20120825
  Serious: Yes (Hospitalization, Other)
  Sender: FDA-Public Use
  Company Number: GB-ARROW GEN-2009A-02094

PATIENT
  Age: 36 Year
  Sex: Female

DRUGS (15)
  1. LACTULOSE [Suspect]
     Indication: PRODUCT USED FOR UNKNOWN INDICATION
     Dosage: 10 ML, PRN
     Route: 065
  2. PERINDOPRIL (UNKNOWN) [Suspect]
     Indication: PRODUCT USED FOR UNKNOWN INDICATION
     Dosage: 2MG QD
     Route: 048
  3. LANSOPRAZOLE [Suspect]
     Indication: PRODUCT USED FOR UNKNOWN INDICATION
     Dosage: 30MG QD
     Route: 048
  4. CLOZARIL [Suspect]
     Dosage: 250 MG DAILY
     Route: 048
     Dates: end: 20050519
  5. BENDROFLUAZIDE [Concomitant]
     Indication: HYPERTENSION
     Route: 065
  6. ZOPICLONE (UNKNOWN) [Suspect]
     Indication: PRODUCT USED FOR UNKNOWN INDICATION
     Dosage: 3.75MG NOCTE
     Route: 065
  7. ARIPIPRAZOLE [Concomitant]
     Indication: PRODUCT USED FOR UNKNOWN INDICATION
     Route: 065
  8. CLOZARIL [Suspect]
     Indication: SCHIZOPHRENIA
     Dosage: 250 MG, DAILY
     Route: 048
     Dates: start: 20060605, end: 20060713
  9. FESOFAR [Suspect]
     Indication: PRODUCT USED FOR UNKNOWN INDICATION
     Dosage: 200 MG, BID
     Route: 048
  10. TRIMETHOPRIM [Suspect]
     Indication: URINARY TRACT INFECTION
     Route: 065
  11. DIAZEPAM [Suspect]
     Indication: PRODUCT USED FOR UNKNOWN INDICATION
     Dosage: PRN
     Route: 065
  12. FOLIC ACID [Suspect]
     Indication: PRODUCT USED FOR UNKNOWN INDICATION
     Dosage: 5MG QD
     Route: 048
  13. RAMIPRIL [Concomitant]
     Indication: HYPERTENSION
     Route: 048
  14. ATORVASTATIN [Concomitant]
     Indication: PRODUCT USED FOR UNKNOWN INDICATION
     Route: 065
  15. FUROSEMIDE [Concomitant]
     Indication: HYPERTENSION
     Route: 065

REACTIONS (18)
  - SKIN DISORDER [None]
  - SINUS TACHYCARDIA [None]
  - BODY MASS INDEX DECREASED [None]
  - STAPHYLOCOCCAL INFECTION [None]
  - CONSTIPATION [None]
  - PYREXIA [None]
  - NEUTROPHIL COUNT INCREASED [None]
  - WHITE BLOOD CELL COUNT INCREASED [None]
  - THROMBOCYTOSIS [None]
  - IRON DEFICIENCY ANAEMIA [None]
  - HIATUS HERNIA [None]
  - MEAN CELL VOLUME DECREASED [None]
  - MALAISE [None]
  - URINARY TRACT INFECTION [None]
  - MONOCYTE COUNT INCREASED [None]
  - DIABETES MELLITUS [None]
  - CARDIAC MURMUR [None]
  - ABDOMINAL TENDERNESS [None]
